FAERS Safety Report 9349669 (Version 1)
Quarter: 2013Q2

REPORT INFORMATION
  Report Type: Spontaneous
  Country: JP (occurrence: JP)
  Receive Date: 20130614
  Receipt Date: 20130614
  Transmission Date: 20140414
  Serious: Yes (Other)
  Sender: FDA-Public Use
  Company Number: JP-ASTRAZENECA-2013SE41429

PATIENT
  Sex: 0

DRUGS (6)
  1. ANAPEINE [Suspect]
     Indication: NERVE BLOCK
     Route: 053
  2. ANAPEINE [Suspect]
     Indication: NERVE BLOCK
     Dosage: ADMINISTERED AT A RATE OF 4 ML/H
     Route: 042
  3. ANAPEINE [Suspect]
     Indication: NERVE BLOCK
     Dosage: ADMINISTRATION AT 3 ML WITH LOCKOUT TIME OF 30 MINUTES
     Route: 040
  4. PROPOFOL [Concomitant]
     Indication: GENERAL ANAESTHESIA
     Dosage: DOSE UNKNOWN
     Route: 042
  5. SEVOFLURANE [Concomitant]
     Indication: MAINTENANCE OF ANAESTHESIA
     Dosage: DOSE UNKNOWN
     Route: 055
  6. FENTANYL [Concomitant]
     Indication: MAINTENANCE OF ANAESTHESIA
     Dosage: DOSE UNKNOWN
     Route: 042

REACTIONS (1)
  - Paralysis [Recovered/Resolved]
